FAERS Safety Report 9092532 (Version 1)
Quarter: 2013Q1

REPORT INFORMATION
  Report Type: Spontaneous
  Country: US (occurrence: US)
  Receive Date: 20130201
  Receipt Date: 20130201
  Transmission Date: 20140127
  Serious: Yes (Hospitalization, Other)
  Sender: FDA-Public Use
  Company Number: US-SANOFI-AVENTIS-2013SA007865

PATIENT
  Age: 75 Year
  Sex: Male

DRUGS (2)
  1. ZALTRAP [Suspect]
     Indication: COLORECTAL CANCER METASTATIC
     Route: 041
     Dates: start: 20121015, end: 20121015
  2. ZALTRAP [Suspect]
     Indication: COLORECTAL CANCER METASTATIC
     Route: 041

REACTIONS (1)
  - Myocardial infarction [Recovered/Resolved]
